FAERS Safety Report 18253384 (Version 1)
Quarter: 2020Q3

REPORT INFORMATION
  Report Type: Spontaneous
  Country: ZA (occurrence: ZA)
  Receive Date: 20200910
  Receipt Date: 20200910
  Transmission Date: 20201103
  Serious: Yes (Hospitalization)
  Sender: FDA-Public Use
  Company Number: ZA-PFIZER INC-2020349142

PATIENT
  Age: 46 Year
  Sex: Female
  Weight: 101 kg

DRUGS (13)
  1. TOPZOLE [Concomitant]
     Active Substance: PANTOPRAZOLE SODIUM
     Indication: GASTRITIS
     Dosage: 40 MG, DAILY
     Route: 048
  2. TERTROXIN [Concomitant]
     Active Substance: LIOTHYRONINE SODIUM
     Indication: HYPOTHYROIDISM
     Dosage: 10 UG, DAILY
     Route: 048
  3. MEDROL [Concomitant]
     Active Substance: METHYLPREDNISOLONE
     Indication: METASTASES TO CENTRAL NERVOUS SYSTEM
     Dosage: 4 MG, DAILY
     Route: 048
  4. EUTHYROX [Concomitant]
     Active Substance: LEVOTHYROXINE SODIUM
     Indication: HYPOTHYROIDISM
     Dosage: 150 UG, DAILY
     Route: 048
  5. CRESTOR [Concomitant]
     Active Substance: ROSUVASTATIN CALCIUM
     Indication: DYSLIPIDAEMIA
     Dosage: 40 MG, DAILY
     Route: 048
  6. CIPALAT RETARD [Concomitant]
     Active Substance: NIFEDIPINE
     Indication: HYPERTENSION
     Dosage: 20 MG, 2X/DAY
     Route: 048
  7. LORBRENA [Suspect]
     Active Substance: LORLATINIB
     Indication: LUNG ADENOCARCINOMA
     Dosage: 100 MG, DAILY
     Route: 048
     Dates: start: 20191115
  8. NUZAK [Concomitant]
     Active Substance: FLUOXETINE HYDROCHLORIDE
     Indication: DEPRESSION
     Dosage: 20 MG, DAILY
     Route: 048
  9. VASOLIP [Concomitant]
     Indication: DYSLIPIDAEMIA
     Dosage: 400 MG, DAILY
  10. EPILIZINE [Concomitant]
     Active Substance: VALPROATE SODIUM
     Indication: METASTASES TO CENTRAL NERVOUS SYSTEM
     Dosage: 400 MG, 2X/DAY
     Route: 048
  11. KEPPRA [Concomitant]
     Active Substance: LEVETIRACETAM
     Indication: METASTASES TO CENTRAL NERVOUS SYSTEM
     Dosage: 500 MG, 2X/DAY
     Route: 048
  12. CLEXANE [Concomitant]
     Active Substance: ENOXAPARIN SODIUM
     Indication: PULMONARY EMBOLISM
     Dosage: 80 MG, 2X/DAY
     Route: 058
  13. COENZYME Q10 PLUS [Concomitant]
     Indication: DYSLIPIDAEMIA
     Dosage: 10 MG, 2X/DAY
     Route: 048

REACTIONS (1)
  - Cystitis [Recovered/Resolved]

NARRATIVE: CASE EVENT DATE: 20200827
